FAERS Safety Report 7264104-0 (Version None)
Quarter: 2011Q1

REPORT INFORMATION
  Report Type: 
  Country: None (occurrence: None)
  Receive Date: 20110130
  Receipt Date: 20101230
  Transmission Date: 20110831
  Serious: No
  Sender: FDA-Public Use
  Company Number: US-ABBOTT-11P-163-0694773-00

PATIENT
  Sex: Female
  Weight: 77.18 kg

DRUGS (6)
  1. HUMIRA [Suspect]
     Indication: CROHN'S DISEASE
     Dates: start: 20100630
  2. TRAZODONE HCL [Concomitant]
     Indication: INSOMNIA
  3. FLINSTONE CHEWABLE [Concomitant]
     Indication: VITAMIN SUPPLEMENTATION
     Dates: start: 20060801
  4. PREDNISONE [Concomitant]
     Indication: DIARRHOEA
     Dates: start: 20100201
  5. PROGESTERONE [Concomitant]
     Indication: PROGESTERONE DECREASED
     Dates: start: 20060801, end: 20101101
  6. HUMIRA [Suspect]
     Dates: start: 20060501, end: 20060801

REACTIONS (13)
  - ARTHRALGIA [None]
  - FLUSHING [None]
  - FEELING HOT [None]
  - CROHN'S DISEASE [None]
  - DIARRHOEA [None]
  - URTICARIA [None]
  - INJECTION SITE REACTION [None]
  - ERYTHEMA [None]
  - DYSPNOEA [None]
  - INFLAMMATION [None]
  - PAIN IN EXTREMITY [None]
  - NEURALGIA [None]
  - VOMITING [None]
